FAERS Safety Report 6202490-0 (Version None)
Quarter: 2009Q2

REPORT INFORMATION
  Report Type: 
  Country: None (occurrence: None)
  Receive Date: 20090521
  Receipt Date: 20090521
  Transmission Date: 20091009
  Serious: Yes (Hospitalization)
  Sender: FDA-Public Use
  Company Number: None

PATIENT
  Sex: Female
  Weight: 68.6 kg

DRUGS (10)
  1. RISPERIDONE [Suspect]
     Indication: ABNORMAL BEHAVIOUR
     Dosage: 0.5MG BID
     Dates: start: 20081021
  2. RISPERIDONE [Suspect]
     Indication: ATTENTION DEFICIT/HYPERACTIVITY DISORDER
     Dosage: 0.5MG BID
     Dates: start: 20081021
  3. CITAPROLAM [Concomitant]
  4. LISINOPRIL [Concomitant]
  5. MEMANTINE HCL [Concomitant]
  6. RIVASTIGMINE TARTRATE [Concomitant]
  7. ESTROGENIC SUBSTANCE [Concomitant]
  8. LEVOTHYROXINE [Concomitant]
  9. DONEZEPRIL [Concomitant]
  10. RISPERIDONE [Concomitant]

REACTIONS (5)
  - APHASIA [None]
  - DRUG INEFFECTIVE [None]
  - HYPOPHAGIA [None]
  - INSOMNIA [None]
  - WEIGHT INCREASED [None]
